FAERS Safety Report 16765475 (Version 1)
Quarter: 2019Q3

REPORT INFORMATION
  Report Type: Spontaneous
  Country: MY (occurrence: MY)
  Receive Date: 20190903
  Receipt Date: 20190903
  Transmission Date: 20191005
  Serious: Yes (Hospitalization)
  Sender: FDA-Public Use
  Company Number: MY-SA-2019SA238676

PATIENT
  Age: 48 Year
  Sex: Female

DRUGS (2)
  1. TAXOTERE [Suspect]
     Active Substance: DOCETAXEL
     Indication: BREAST CANCER
     Dosage: 1X80MG
     Route: 042
     Dates: start: 20190814, end: 20190814
  2. TAXOTERE [Suspect]
     Active Substance: DOCETAXEL
     Dosage: 2X20MG
     Route: 042
     Dates: start: 20190814, end: 20190814

REACTIONS (3)
  - Lip swelling [Unknown]
  - Mouth ulceration [Unknown]
  - Rash generalised [Unknown]

NARRATIVE: CASE EVENT DATE: 20190823
